FAERS Safety Report 9575211 (Version 2)
Quarter: 2014Q1

REPORT INFORMATION
  Report Type: Spontaneous
  Country: US (occurrence: US)
  Receive Date: 20131001
  Receipt Date: 20140204
  Transmission Date: 20141002
  Serious: Yes (Other)
  Sender: FDA-Public Use
  Company Number: US-GLAXOSMITHKLINE-A1035257A

PATIENT
  Age: 67 Year
  Sex: Male
  Weight: 82.3 kg

DRUGS (12)
  1. VOTRIENT [Suspect]
     Indication: RENAL CELL CARCINOMA
     Dosage: 400MG PER DAY
     Route: 048
     Dates: start: 20130624, end: 20130821
  2. COUMADIN [Concomitant]
  3. CARVEDILOL [Concomitant]
  4. LISINOPRIL [Concomitant]
  5. MULTIVITAMIN [Concomitant]
  6. VITAMIN D3 [Concomitant]
  7. PROBIOTIC [Concomitant]
  8. CALTRATE-600 [Concomitant]
  9. XALATAN [Concomitant]
  10. OMEGA 3 [Concomitant]
  11. PROCHLORPERAZINE TAB [Concomitant]
  12. INTERFERON BETA-1B [Concomitant]

REACTIONS (10)
  - Renal injury [Unknown]
  - Cardiac disorder [Unknown]
  - Fatigue [Unknown]
  - Nausea [Unknown]
  - Diarrhoea [Unknown]
  - Weight decreased [Unknown]
  - Dyspnoea [Unknown]
  - Jaundice [Unknown]
  - Laboratory test abnormal [Unknown]
  - Liver disorder [Unknown]
